FAERS Safety Report 5810803-4 (Version None)
Quarter: 2008Q3

REPORT INFORMATION
  Report Type: 
  Country: None (occurrence: None)
  Receive Date: 20080709
  Receipt Date: 20080624
  Transmission Date: 20090109
  Serious: Yes (Disabling)
  Sender: FDA-Public Use
  Company Number: OSCN-NO-0701S-0041

PATIENT
  Age: 42 Year
  Sex: Male
  Weight: 142 kg

DRUGS (1)
  1. OMNISCAN [Suspect]
     Indication: COMPLICATIONS OF TRANSPLANTED KIDNEY
     Dosage: 25 ML, SINGLE DOSE, I.V.
     Route: 042
     Dates: start: 20030415, end: 20030415

REACTIONS (2)
  - NEPHROGENIC SYSTEMIC FIBROSIS [None]
  - PERIPHERAL SENSORY NEUROPATHY [None]
